FAERS Safety Report 7174378-2 (Version None)
Quarter: 2010Q4

REPORT INFORMATION
  Report Type: 
  Country: None (occurrence: None)
  Receive Date: 20101219
  Receipt Date: 20100326
  Transmission Date: 20110411
  Serious: No
  Sender: FDA-Public Use
  Company Number: US-AMGEN-KDL402114

PATIENT

DRUGS (8)
  1. ENBREL [Suspect]
     Indication: PRODUCT USED FOR UNKNOWN INDICATION
     Dosage: 25 MG, 2 TIMES/WK
     Route: 058
  2. ALENDRONATE SODIUM [Concomitant]
     Dosage: 10 MG, UNK
  3. FLUTICASONE PROPIONATE [Concomitant]
     Dosage: 50 A?G, UNK
  4. FLUTICASONE/SALMETEROL [Concomitant]
  5. OMEPRAZOLE [Concomitant]
     Dosage: 20 MG, UNK
  6. TIOTROPIUM BROMIDE [Concomitant]
     Dosage: UNK UNK, UNK
  7. EZETIMIBE/SIMVASTATIN [Concomitant]
     Dosage: 20 MG, UNK
  8. CALCIUM WITH VITAMIN D [Concomitant]
     Dosage: UNK UNK, UNK

REACTIONS (1)
  - NASOPHARYNGITIS [None]
